FAERS Safety Report 16955632 (Version 18)
Quarter: 2022Q4

REPORT INFORMATION
  Report Type: Spontaneous
  Country: US (occurrence: US)
  Receive Date: 20191024
  Receipt Date: 20221007
  Transmission Date: 20230113
  Serious: Yes (Other)
  Sender: FDA-Public Use
  Company Number: US-PFIZER INC-2019458377

PATIENT
  Age: 29 Year
  Sex: Female
  Weight: 68 kg

DRUGS (15)
  1. PRISTIQ EXTENDED-RELEASE [Suspect]
     Active Substance: DESVENLAFAXINE SUCCINATE
     Indication: Anxiety
     Dosage: 50 MG, 1X/DAY [50 MG BY MOUTH ONCE A DAY IN MORNING]/[1 PO QD]
     Route: 048
  2. PRISTIQ EXTENDED-RELEASE [Suspect]
     Active Substance: DESVENLAFAXINE SUCCINATE
     Indication: Depression
     Dosage: 25 MG
     Route: 048
  3. PRISTIQ EXTENDED-RELEASE [Suspect]
     Active Substance: DESVENLAFAXINE SUCCINATE
     Dosage: 100 MG, 1X/DAY
     Route: 048
     Dates: start: 20190923, end: 20190926
  4. PRISTIQ EXTENDED-RELEASE [Suspect]
     Active Substance: DESVENLAFAXINE SUCCINATE
     Dosage: 100 MG, 1X/DAY [50 MG IN THE MORNING BUT NOW SHE TAKES 2 OF THEM IN THE MORNING]
     Route: 048
  5. PRISTIQ EXTENDED-RELEASE [Suspect]
     Active Substance: DESVENLAFAXINE SUCCINATE
     Dosage: 100 MG, UNK
     Route: 048
  6. PRISTIQ EXTENDED-RELEASE [Suspect]
     Active Substance: DESVENLAFAXINE SUCCINATE
     Dosage: 25 MG, 1X/DAY[1 PO QD EACH]
     Route: 048
  7. PRISTIQ EXTENDED-RELEASE [Suspect]
     Active Substance: DESVENLAFAXINE SUCCINATE
     Dosage: 50 MG, 1X/DAY
     Route: 048
  8. PRISTIQ EXTENDED-RELEASE [Suspect]
     Active Substance: DESVENLAFAXINE SUCCINATE
     Dosage: 25 MG, 1X/DAY
     Route: 048
  9. PRISTIQ EXTENDED-RELEASE [Suspect]
     Active Substance: DESVENLAFAXINE SUCCINATE
     Dosage: 75 MG, UNK (50 AND 25,THREE 25 MG TABLETS, 50MG PLUS ANOTHER ONE CUT IN HALF)
     Route: 048
  10. PRISTIQ EXTENDED-RELEASE [Suspect]
     Active Substance: DESVENLAFAXINE SUCCINATE
     Dosage: 50 MG, 2X/DAY
     Route: 048
  11. CETIRIZINE [Concomitant]
     Active Substance: CETIRIZINE HYDROCHLORIDE
     Indication: Seasonal allergy
     Dosage: 10 MG, 1X/DAY [10 MG NIGHTLY]
     Dates: start: 1999
  12. LOESTRIN 1/20 21 DAY [Concomitant]
     Active Substance: ETHINYL ESTRADIOL\NORETHINDRONE ACETATE
     Indication: Contraception
     Dosage: UNK, 1X/DAY [ONCE A DAY, TAKES CONSTANT ACTIVE PILLS, NO WEEK OF BROWN PILLS]
     Dates: start: 2007
  13. MAGNESIUM [Concomitant]
     Active Substance: MAGNESIUM
     Indication: Abdominal discomfort
     Dosage: 400 MG, 1X/DAY [400 MG AT NIGHT]
     Dates: start: 2017
  14. VITAMIN D3 [Concomitant]
     Active Substance: CHOLECALCIFEROL
     Indication: Supplementation therapy
     Dosage: 5000 IU, DAILY [5000 IU A DAY]
     Dates: start: 2017
  15. VYVANSE [Concomitant]
     Active Substance: LISDEXAMFETAMINE DIMESYLATE
     Indication: Attention deficit hyperactivity disorder
     Dosage: 40 MG, 1X/DAY [40 MG IN MORNING]
     Dates: start: 2014

REACTIONS (11)
  - Drug dependence [Unknown]
  - Hyperhidrosis [Recovered/Resolved]
  - Insomnia [Unknown]
  - Suicidal behaviour [Unknown]
  - Drug ineffective [Unknown]
  - Wrong technique in product usage process [Unknown]
  - Product dispensing error [Unknown]
  - Intentional product misuse [Unknown]
  - Tachyphrenia [Unknown]
  - Stress [Unknown]
  - Feeling abnormal [Unknown]
